FAERS Safety Report 18317762 (Version 1)
Quarter: 2020Q3

REPORT INFORMATION
  Report Type: Spontaneous
  Country: US (occurrence: US)
  Receive Date: 20200928
  Receipt Date: 20200928
  Transmission Date: 20201103
  Serious: No
  Sender: FDA-Public Use
  Company Number: US-ALLERGAN-1942991US

PATIENT
  Sex: Male

DRUGS (2)
  1. LEXAPRO [Suspect]
     Active Substance: ESCITALOPRAM OXALATE
     Indication: DEPRESSION
  2. XANAX [Concomitant]
     Active Substance: ALPRAZOLAM

REACTIONS (5)
  - Anxiety [Not Recovered/Not Resolved]
  - Mood swings [Not Recovered/Not Resolved]
  - Stress [Not Recovered/Not Resolved]
  - Abulia [Not Recovered/Not Resolved]
  - Phobia [Not Recovered/Not Resolved]
